FAERS Safety Report 19460229 (Version 1)
Quarter: 2021Q2

REPORT INFORMATION
  Report Type: Spontaneous
  Country: BR (occurrence: BR)
  Receive Date: 20210625
  Receipt Date: 20210625
  Transmission Date: 20210717
  Serious: Yes (Hospitalization)
  Sender: FDA-Public Use
  Company Number: BR-ROCHE-2855065

PATIENT
  Sex: Female

DRUGS (2)
  1. COVID?19 VACCINE [Concomitant]
     Dates: start: 20210527
  2. ACTEMRA [Suspect]
     Active Substance: TOCILIZUMAB
     Indication: RHEUMATOID ARTHRITIS
     Route: 065

REACTIONS (4)
  - Urinary tract infection [Recovering/Resolving]
  - Pain [Recovering/Resolving]
  - Pyelonephritis [Recovering/Resolving]
  - Haemoglobin decreased [Not Recovered/Not Resolved]
